FAERS Safety Report 7241362-X (Version None)
Quarter: 2011Q1

REPORT INFORMATION
  Report Type: 
  Country: None (occurrence: None)
  Receive Date: 20110120
  Receipt Date: 20110120
  Transmission Date: 20110831
  Serious: Yes (Disabling, Other)
  Sender: FDA-Public Use
  Company Number: None

PATIENT
  Age: 55 Year
  Sex: Female
  Weight: 76.2043 kg

DRUGS (2)
  1. CIPROFLOXACIN HCL [Suspect]
     Indication: PYELONEPHRITIS
     Dosage: 500MG BID PO
     Route: 048
     Dates: start: 20110117, end: 20110118
  2. CIPROFLOXACIN HCL [Suspect]
     Indication: URINARY TRACT INFECTION
     Dosage: 500MG BID PO
     Route: 048
     Dates: start: 20110117, end: 20110118

REACTIONS (4)
  - DIZZINESS [None]
  - BURNING SENSATION [None]
  - TINNITUS [None]
  - HYPOAESTHESIA FACIAL [None]
